FAERS Safety Report 4503823-3 (Version None)
Quarter: 2004Q4

REPORT INFORMATION
  Report Type: 
  Country: None (occurrence: None)
  Receive Date: 20041115
  Receipt Date: 20041103
  Transmission Date: 20050328
  Serious: Yes (Death, Other)
  Sender: FDA-Public Use
  Company Number: 2004-11-0181

PATIENT
  Age: 41 Year
  Sex: Female

DRUGS (4)
  1. INTERFERON ALFA LIKE INTRON A INJECTABLE [Suspect]
     Indication: CHRONIC MYELOID LEUKAEMIA
     Dosage: SEE IMAGE
     Dates: start: 20000201, end: 20000101
  2. INTERFERON ALFA LIKE INTRON A INJECTABLE [Suspect]
     Indication: CHRONIC MYELOID LEUKAEMIA
     Dosage: SEE IMAGE
     Dates: start: 19950201, end: 20000201
  3. INTERFERON ALFA LIKE INTRON A INJECTABLE [Suspect]
     Indication: CHRONIC MYELOID LEUKAEMIA
     Dosage: SEE IMAGE
     Dates: start: 20000101, end: 20000301
  4. HYDROXYUREA [Concomitant]

REACTIONS (13)
  - ASTHENIA [None]
  - BLOOD LACTATE DEHYDROGENASE INCREASED [None]
  - COOMBS TEST POSITIVE [None]
  - DISEASE PROGRESSION [None]
  - GENERAL PHYSICAL HEALTH DETERIORATION [None]
  - GRAND MAL CONVULSION [None]
  - HAEMOLYTIC ANAEMIA [None]
  - HAEMORRHAGE INTRACRANIAL [None]
  - LUNG INFECTION [None]
  - PLATELET COUNT DECREASED [None]
  - PNEUMONIA [None]
  - RESPIRATORY FAILURE [None]
  - SEPSIS [None]
